FAERS Safety Report 5311641-1 (Version None)
Quarter: 2007Q2

REPORT INFORMATION
  Report Type: 
  Country: None (occurrence: None)
  Receive Date: 20070430
  Receipt Date: 20060727
  Transmission Date: 20071010
  Serious: No
  Sender: FDA-Public Use
  Company Number: 2006UW15220

PATIENT
  Age: 24 Year
  Sex: Female
  Weight: 52.2 kg

DRUGS (1)
  1. ZOMIG [Suspect]
     Indication: MIGRAINE
     Route: 048

REACTIONS (5)
  - DRUG EXPOSURE DURING PREGNANCY [None]
  - HANGOVER [None]
  - MIGRAINE [None]
  - NAUSEA [None]
  - SOMNOLENCE [None]
